FAERS Safety Report 13482487 (Version 3)
Quarter: 2018Q1

REPORT INFORMATION
  Report Type: Spontaneous
  Country: US (occurrence: US)
  Receive Date: 20170424
  Receipt Date: 20180123
  Transmission Date: 20180508
  Serious: No
  Sender: FDA-Public Use
  Company Number: US-AMGEN-USASP2017053767

PATIENT
  Age: 77 Year
  Sex: Female

DRUGS (2)
  1. REPATHA [Suspect]
     Active Substance: EVOLOCUMAB
     Dosage: 420 MG, Q2WK
     Route: 065
     Dates: start: 20170329, end: 20170329
  2. REPATHA [Suspect]
     Active Substance: EVOLOCUMAB
     Indication: HYPERCHOLESTEROLAEMIA
     Dosage: 420 MG, Q2WK
     Route: 065
     Dates: start: 20170315

REACTIONS (7)
  - Off label use [Unknown]
  - Pain in extremity [Recovering/Resolving]
  - Injection site bruising [Recovering/Resolving]
  - Muscle spasms [Recovering/Resolving]
  - Back pain [Recovering/Resolving]
  - Injection site pain [Recovering/Resolving]
  - Arthralgia [Recovering/Resolving]

NARRATIVE: CASE EVENT DATE: 201703
